FAERS Safety Report 6642581-3 (Version None)
Quarter: 2010Q1

REPORT INFORMATION
  Report Type: 
  Country: None (occurrence: None)
  Receive Date: 20100319
  Receipt Date: 20100210
  Transmission Date: 20100710
  Serious: No
  Sender: FDA-Public Use
  Company Number: A0843879A

PATIENT
  Age: 55 Year
  Sex: Male

DRUGS (11)
  1. PROMACTA [Suspect]
     Dosage: 50MG PER DAY
     Route: 048
     Dates: start: 20090701
  2. PREVACID [Concomitant]
  3. ALLOPURINOL [Concomitant]
  4. COLCHICINE [Concomitant]
  5. CLONIDINE [Concomitant]
  6. RESTORIL [Concomitant]
  7. VALIUM [Concomitant]
  8. DILAUDID [Concomitant]
  9. OXYCONTIN [Concomitant]
  10. OXYBUTYNIN [Concomitant]
  11. DETROL [Concomitant]

REACTIONS (4)
  - DEPRESSION [None]
  - FATIGUE [None]
  - PRURITUS [None]
  - WEIGHT DECREASED [None]
